FAERS Safety Report 17585813 (Version 1)
Quarter: 2020Q1

REPORT INFORMATION
  Report Type: Spontaneous
  Country: PT (occurrence: PT)
  Receive Date: 20200326
  Receipt Date: 20200326
  Transmission Date: 20200409
  Serious: Yes (Death)
  Sender: FDA-Public Use
  Company Number: PT-MYLANLABS-2020M1031992

PATIENT
  Age: 74 Year
  Sex: Male

DRUGS (4)
  1. GENTAMICINA                        /00047101/ [Concomitant]
     Active Substance: GENTAMICIN
     Indication: INFECTION
     Dosage: UNK
  2. CEFTRIAXONA                        /00672201/ [Concomitant]
     Active Substance: CEFTRIAXONE
     Indication: PRODUCT USED FOR UNKNOWN INDICATION
     Dosage: UNK
  3. VANCOMYCIN [Suspect]
     Active Substance: VANCOMYCIN
     Indication: INFECTION
     Dosage: UNK
  4. RIFAXIMINA [Concomitant]
     Active Substance: RIFAXIMIN
     Indication: INFECTION
     Dosage: UNK

REACTIONS (1)
  - Drug ineffective [Fatal]
